FAERS Safety Report 9181453 (Version 2)
Quarter: 2013Q4

REPORT INFORMATION
  Report Type: Spontaneous
  Country: US (occurrence: US)
  Receive Date: 20130322
  Receipt Date: 20131118
  Transmission Date: 20140711
  Serious: Yes (Other)
  Sender: FDA-Public Use
  Company Number: US-BAYER-2013-036068

PATIENT
  Age: 26 Year
  Sex: Female

DRUGS (6)
  1. YAZ [Suspect]
     Indication: ACNE
     Dosage: UNK
  2. YASMIN [Suspect]
     Indication: ACNE
     Dosage: UNK
  3. OCELLA [Suspect]
     Indication: ACNE
     Dosage: UNK
  4. ZOFRAN [Concomitant]
     Dosage: 4 MG, UNK
     Dates: start: 20120309
  5. MOTRIN [Concomitant]
     Dosage: 600 MG, UNK
     Dates: start: 20120309
  6. LEVORA [Concomitant]
     Dosage: UNK

REACTIONS (5)
  - Injury [None]
  - Deep vein thrombosis [None]
  - Cholecystitis chronic [None]
  - Pain [None]
  - Pain [None]
